FAERS Safety Report 6080527-X (Version None)
Quarter: 2009Q1

REPORT INFORMATION
  Report Type: 
  Country: None (occurrence: None)
  Receive Date: 20090217
  Receipt Date: 20090209
  Transmission Date: 20090719
  Serious: Yes (Other)
  Sender: FDA-Public Use
  Company Number: A0764323A

PATIENT
  Age: 33 Year
  Sex: Female
  Weight: 97.7 kg

DRUGS (3)
  1. TYKERB [Suspect]
     Indication: BREAST CANCER
     Dosage: 1250MG PER DAY
     Route: 048
     Dates: start: 20081028
  2. CHEMOTHERAPY [Concomitant]
  3. ABRAXANE [Concomitant]
     Route: 042
     Dates: start: 20081028

REACTIONS (8)
  - ASTHENIA [None]
  - BODY TEMPERATURE INCREASED [None]
  - DIARRHOEA [None]
  - FATIGUE [None]
  - LEUKOPENIA [None]
  - NEUTROPENIA [None]
  - NEUTROPHIL COUNT DECREASED [None]
  - STOMATITIS [None]
